FAERS Safety Report 7557436-X (Version None)
Quarter: 2011Q2

REPORT INFORMATION
  Report Type: 
  Country: None (occurrence: None)
  Receive Date: 20110620
  Receipt Date: 20110607
  Transmission Date: 20111010
  Serious: Yes (Life-Threatening, Hospitalization, Other)
  Sender: FDA-Public Use
  Company Number: US-ROCHE-783032

PATIENT

DRUGS (4)
  1. PACLITAXEL [Suspect]
     Indication: NON-SMALL CELL LUNG CANCER
     Dosage: LAST DOSE: 08 DECEMBER 2010
     Route: 042
     Dates: start: 20101208
  2. CARBOPLATIN [Suspect]
     Indication: NON-SMALL CELL LUNG CANCER
     Dosage: DOSE: 6AUC, LAST DOSE: 08 DECEMBER 2010.
     Route: 042
     Dates: start: 20101208
  3. BEVACIZUMAB [Suspect]
     Indication: NON-SMALL CELL LUNG CANCER
     Dosage: LAST DOSE: 08 DECEMBER 2010
     Route: 042
     Dates: start: 20101208
  4. IMC-A12 [Suspect]
     Indication: NON-SMALL CELL LUNG CANCER
     Dosage: DOSE: 12:6 MG/KG, LAST DOSE: 08 DECEMBER 2010.
     Route: 042
     Dates: start: 20101208

REACTIONS (9)
  - HEADACHE [None]
  - FEBRILE NEUTROPENIA [None]
  - LYMPHOCYTE COUNT DECREASED [None]
  - NEUTROPHIL COUNT DECREASED [None]
  - WHITE BLOOD CELL COUNT DECREASED [None]
  - LUNG INFECTION [None]
  - ATELECTASIS [None]
  - DYSPNOEA [None]
  - PLATELET COUNT DECREASED [None]
